FAERS Safety Report 8338470-9 (Version None)
Quarter: 2012Q1

REPORT INFORMATION
  Report Type: 
  Country: None (occurrence: None)
  Receive Date: 20120329
  Receipt Date: 20090106
  Transmission Date: 20120608
  Serious: Yes (Other)
  Sender: FDA-Public Use
  Company Number: PHEH2008US08888

PATIENT
  Sex: Female

DRUGS (1)
  1. EXELON [Suspect]
     Dosage: TRANSDERMAL
     Route: 062
     Dates: start: 20080501

REACTIONS (9)
  - NIGHT SWEATS [None]
  - SKIN IRRITATION [None]
  - PRURITUS [None]
  - WEIGHT DECREASED [None]
  - ERYTHEMA [None]
  - INSOMNIA [None]
  - DECREASED APPETITE [None]
  - HEADACHE [None]
  - HEART RATE IRREGULAR [None]
